FAERS Safety Report 12755886 (Version 2)
Quarter: 2016Q4

REPORT INFORMATION
  Report Type: Spontaneous
  Country: SK (occurrence: SK)
  Receive Date: 20160916
  Receipt Date: 20161017
  Transmission Date: 20170207
  Serious: Yes (Hospitalization)
  Sender: FDA-Public Use
  Company Number: SK-PFIZER INC-2016419776

PATIENT
  Sex: Female

DRUGS (10)
  1. SIOFOR [Concomitant]
     Active Substance: METFORMIN HYDROCHLORIDE
     Dosage: 850 MG, 3X/DAY
  2. FRAXIPARINE [Concomitant]
     Active Substance: NADROPARIN CALCIUM
     Dosage: 0.4 ML, DAILY
     Route: 058
  3. XALKORI [Suspect]
     Active Substance: CRIZOTINIB
     Indication: LUNG ADENOCARCINOMA STAGE IV
     Dosage: 250 MG, 2X/DAY
     Dates: start: 20160706, end: 201608
  4. VALZAP HCT [Concomitant]
     Dosage: 160/12,5 ,1 DOSE IN THE MORNING, 1X/DAY
  5. CORVATON [Concomitant]
     Active Substance: MOLSIDOMINE
     Dosage: 1 TABLET IN THE EVENING, 1X/DAY
  6. OXYPHYLLIN [Concomitant]
     Dosage: 1 DOSE IN THE MORNING, 1 MIDDAY, 1 IN THE EVENING, 3X/DAY
  7. NOVALGIN [Concomitant]
     Active Substance: METAMIZOLE SODIUM
     Dosage: UNK UNK, AS NEEDED
  8. CONCOR [Concomitant]
     Active Substance: BISOPROLOL FUMARATE
     Dosage: 1/2 DOSE IN THE MORNING, 1X/DAY
  9. VEROSPIRON [Concomitant]
     Active Substance: SPIRONOLACTONE
     Dosage: 1/2 TABLET IN THE MORNING, 1X/DAY
  10. VALZAP [Concomitant]
     Dosage: 80 1 TABLET IN THE EVENING, 1X/DAY

REACTIONS (4)
  - Appendicitis [Recovering/Resolving]
  - Wound dehiscence [Recovering/Resolving]
  - Anaemia [Recovering/Resolving]
  - Peritonitis [Recovering/Resolving]

NARRATIVE: CASE EVENT DATE: 20160716
